FAERS Safety Report 5085357-3 (Version None)
Quarter: 2006Q3

REPORT INFORMATION
  Report Type: 
  Country: None (occurrence: None)
  Receive Date: 20060822
  Receipt Date: 20060811
  Transmission Date: 20061208
  Serious: Yes (Hospitalization)
  Sender: FDA-Public Use
  Company Number: US-JNJFOC-20060802897

PATIENT
  Age: 6 Year
  Sex: Male
  Weight: 27 kg

DRUGS (3)
  1. REMICADE [Suspect]
     Indication: KAWASAKI'S DISEASE
     Dosage: 5 MG/KG
     Route: 042
  2. IMMUNE GLOBULIN INTRAVENOUS (HUMAN) [Concomitant]
  3. ASPIRIN [Concomitant]

REACTIONS (2)
  - PAIN IN EXTREMITY [None]
  - SENSORY DISTURBANCE [None]
